FAERS Safety Report 9331553 (Version 2)
Quarter: 2013Q3

REPORT INFORMATION
  Report Type: Spontaneous
  Country: US (occurrence: None)
  Receive Date: 20130603
  Receipt Date: 20130708
  Transmission Date: 20140515
  Serious: Yes (Death, Hospitalization)
  Sender: FDA-Public Use
  Company Number: 2013AP005688

PATIENT
  Age: 21 Year
  Sex: Male
  Weight: 76.3 kg

DRUGS (2)
  1. FERRIPROX [Suspect]
     Indication: IRON OVERLOAD
     Route: 048
     Dates: start: 20130411, end: 20130423
  2. FERRIPROX [Suspect]
     Indication: MYELODYSPLASTIC SYNDROME
     Route: 048
     Dates: start: 20130411, end: 20130423

REACTIONS (7)
  - Death [None]
  - Nausea [None]
  - Abdominal discomfort [None]
  - Hypotension [None]
  - Cardiac arrest [None]
  - Sepsis [None]
  - Neutropenia [None]
